FAERS Safety Report 14127638 (Version 1)
Quarter: 2017Q4

REPORT INFORMATION
  Report Type: Report from Study
  Country: None (occurrence: US)
  Receive Date: 20171026
  Receipt Date: 20171026
  Transmission Date: 20180321
  Serious: Yes (Hospitalization)
  Sender: FDA-Public Use
  Company Number: US-ABBVIE-17K-163-2125971-00

PATIENT
  Age: 31 Year
  Sex: Female

DRUGS (5)
  1. VITAFOL [Concomitant]
     Indication: PREGNANCY
  2. HUMIRA [Suspect]
     Active Substance: ADALIMUMAB
     Indication: COLITIS ULCERATIVE
     Route: 058
     Dates: start: 20170824, end: 20170911
  3. PREDNISONE. [Concomitant]
     Active Substance: PREDNISONE
     Indication: COLITIS ULCERATIVE
     Dosage: TAPERING DOSES
  4. OMEPRAZOLE. [Concomitant]
     Active Substance: OMEPRAZOLE
     Indication: GASTROOESOPHAGEAL REFLUX DISEASE
  5. LEVOXYL [Concomitant]
     Active Substance: LEVOTHYROXINE SODIUM
     Indication: HYPOTHYROIDISM

REACTIONS (6)
  - White blood cell count decreased [Recovered/Resolved]
  - Idiosyncratic drug reaction [Not Recovered/Not Resolved]
  - Drug hypersensitivity [Unknown]
  - Pyrexia [Recovered/Resolved]
  - Colitis ulcerative [Recovered/Resolved]
  - Drug specific antibody [Unknown]

NARRATIVE: CASE EVENT DATE: 2017
